FAERS Safety Report 5735581-9 (Version None)
Quarter: 2008Q2

REPORT INFORMATION
  Report Type: 
  Country: None (occurrence: None)
  Receive Date: 20080512
  Receipt Date: 20080430
  Transmission Date: 20081010
  Serious: Yes (Other)
  Sender: FDA-Public Use
  Company Number: GB-PFIZER INC-2008023915

PATIENT
  Sex: Male
  Weight: 85 kg

DRUGS (3)
  1. SUTENT [Suspect]
     Indication: RENAL CANCER METASTATIC
     Route: 048
  2. PENICILLIN [Concomitant]
     Indication: SPLENECTOMY
     Route: 048
  3. LANSOPRAZOLE [Concomitant]
     Route: 048

REACTIONS (5)
  - BLOOD ERYTHROPOIETIN INCREASED [None]
  - HAEMATOCRIT INCREASED [None]
  - HAEMOGLOBIN INCREASED [None]
  - MACROCYTOSIS [None]
  - VOLUME BLOOD DECREASED [None]
